FAERS Safety Report 13923136 (Version 1)
Quarter: 2017Q3

REPORT INFORMATION
  Report Type: Report from Study
  Country: None (occurrence: US)
  Receive Date: 20170831
  Receipt Date: 20170831
  Transmission Date: 20171127
  Serious: Yes (Other)
  Sender: FDA-Public Use
  Company Number: US-ABBVIE-17K-163-2082068-00

PATIENT
  Sex: Female

DRUGS (2)
  1. HUMIRA [Suspect]
     Active Substance: ADALIMUMAB
     Indication: RHEUMATOID ARTHRITIS
     Route: 058
  2. HUMIRA [Suspect]
     Active Substance: ADALIMUMAB
     Indication: ANKYLOSING SPONDYLITIS

REACTIONS (10)
  - Cataract [Unknown]
  - Thrombosis [Unknown]
  - Peripheral swelling [Unknown]
  - Pain in extremity [Unknown]
  - Joint swelling [Unknown]
  - Paraesthesia [Unknown]
  - Vein rupture [Unknown]
  - Arthralgia [Unknown]
  - Contusion [Unknown]
  - Asthma [Recovering/Resolving]
